FAERS Safety Report 9681942 (Version 2)
Quarter: 2013Q4

REPORT INFORMATION
  Report Type: Report from Study
  Country: US (occurrence: US)
  Receive Date: 20131111
  Receipt Date: 20131111
  Transmission Date: 20140711
  Serious: Yes (Hospitalization)
  Sender: FDA-Public Use
  Company Number: US-TEVA-388878USA

PATIENT
  Age: 59 Year
  Sex: Female
  Weight: 71.2 kg

DRUGS (10)
  1. TREANDA [Suspect]
     Indication: DIFFUSE LARGE B-CELL LYMPHOMA
     Dosage: UNKNOWN/D
     Route: 042
     Dates: start: 20130117
  2. RITUXIMAB [Suspect]
     Indication: DIFFUSE LARGE B-CELL LYMPHOMA
     Dosage: UNKNOWN/D
     Route: 042
     Dates: start: 20130117
  3. IBRUTINIB [Suspect]
     Indication: DIFFUSE LARGE B-CELL LYMPHOMA
     Dosage: 560 MILLIGRAM DAILY;
     Route: 048
     Dates: start: 20130117, end: 20130129
  4. IBRUTINIB [Suspect]
     Route: 048
     Dates: start: 20130207
  5. VALACICLOVIR [Concomitant]
     Dosage: 500 MILLIGRAM DAILY;
     Route: 048
  6. BENADRYL [Concomitant]
     Dosage: ONCE DAILY AS NEEDED
     Route: 048
  7. LORAZEPAM [Concomitant]
     Route: 048
  8. PROCHLORPERAZINE [Concomitant]
     Route: 048
  9. OMEPRAZOLE [Concomitant]
     Dosage: 40 MILLIGRAM DAILY;
  10. METFORMIN [Concomitant]
     Dosage: 1000 MILLIGRAM DAILY;
     Route: 048

REACTIONS (3)
  - Amnesia [Recovered/Resolved]
  - Hypotension [Recovered/Resolved]
  - Drug reaction with eosinophilia and systemic symptoms [Unknown]
